FAERS Safety Report 16208642 (Version 3)
Quarter: 2019Q2

REPORT INFORMATION
  Report Type: Report from Study
  Country: US (occurrence: US)
  Receive Date: 20190417
  Receipt Date: 20190509
  Transmission Date: 20190711
  Serious: Yes (Other)
  Sender: FDA-Public Use
  Company Number: US-BAYER-2019-069438

PATIENT
  Age: 71 Year
  Sex: Female

DRUGS (2)
  1. STIVARGA [Suspect]
     Active Substance: REGORAFENIB
     Indication: COLORECTAL CANCER
     Dosage: DAILY DOSE 120 MG FOR 14 DAYS, 7 DAYS OFF
     Route: 048
     Dates: start: 20190409, end: 20190412
  2. STIVARGA [Suspect]
     Active Substance: REGORAFENIB
     Indication: COLORECTAL CANCER
     Dosage: DAILY DOSE 80 MG FOR 1 WEEK
     Route: 048
     Dates: start: 20190402, end: 20190408

REACTIONS (11)
  - Dry skin [None]
  - Blood bilirubin increased [Recovering/Resolving]
  - Pain in extremity [None]
  - Dyspnoea [Not Recovered/Not Resolved]
  - Dysphonia [None]
  - Headache [Not Recovered/Not Resolved]
  - Oral pain [Recovered/Resolved]
  - Fatigue [Not Recovered/Not Resolved]
  - Asthenia [Recovering/Resolving]
  - Neuropathy peripheral [Not Recovered/Not Resolved]
  - Off label use [None]

NARRATIVE: CASE EVENT DATE: 2019
